FAERS Safety Report 15505937 (Version 3)
Quarter: 2018Q4

REPORT INFORMATION
  Report Type: Spontaneous
  Country: PT (occurrence: PT)
  Receive Date: 20181016
  Receipt Date: 20181030
  Transmission Date: 20190205
  Serious: Yes (Hospitalization, Other)
  Sender: FDA-Public Use
  Company Number: PT-009507513-1810PRT005435

PATIENT
  Age: 71 Year
  Sex: Female

DRUGS (3)
  1. FLUCONAZOLE. [Suspect]
     Active Substance: FLUCONAZOLE
     Indication: PNEUMONIA PSEUDOMONAL
     Dosage: 200 MILLIGRAM, QD
     Dates: start: 20180901, end: 20180912
  2. ZERBAXA [Suspect]
     Active Substance: CEFTOLOZANE SULFATE\TAZOBACTAM SODIUM
     Indication: PNEUMONIA PSEUDOMONAL
     Dosage: 1.5 GRAM, Q8H (ALSO REPORTED AS 3 G EVERY 8 H)
     Route: 042
     Dates: start: 20180901, end: 20180912
  3. TIGECYCLINE. [Suspect]
     Active Substance: TIGECYCLINE
     Indication: PNEUMONIA PSEUDOMONAL
     Dosage: 100 MILLIGRAM, Q12H
     Dates: start: 20180901, end: 20180912

REACTIONS (2)
  - Off label use [Unknown]
  - Agranulocytosis [Recovered/Resolved]

NARRATIVE: CASE EVENT DATE: 20180901
